FAERS Safety Report 25661018 (Version 4)
Quarter: 2025Q4

REPORT INFORMATION
  Report Type: Spontaneous
  Country: JP (occurrence: JP)
  Receive Date: 20250808
  Receipt Date: 20251119
  Transmission Date: 20260119
  Serious: Yes (Hospitalization)
  Sender: ALEXION PHARMACEUTICALS
  Company Number: JP-ASTRAZENECA-202508JPN001676JP

PATIENT
  Age: 78 Year
  Sex: Female
  Weight: 38.8 kg

DRUGS (19)
  1. TRUQAP [Suspect]
     Active Substance: CAPIVASERTIB
     Indication: Breast cancer female
     Dosage: 160 MILLIGRAM, BID
     Dates: start: 20250518, end: 20250526
  2. TRUQAP [Suspect]
     Active Substance: CAPIVASERTIB
     Indication: Breast cancer
  3. DAPAGLIFLOZIN [Suspect]
     Active Substance: DAPAGLIFLOZIN
     Indication: Product used for unknown indication
     Dosage: 5 MILLIGRAM
     Route: 065
  4. FASLODEX [Suspect]
     Active Substance: FULVESTRANT
     Indication: Breast cancer female
  5. FASLODEX [Suspect]
     Active Substance: FULVESTRANT
  6. LOPERAMIDE [Concomitant]
     Active Substance: LOPERAMIDE
     Dosage: UNK
  7. EDOXABAN TOSYLATE [Concomitant]
     Active Substance: EDOXABAN TOSYLATE
     Dosage: UNK
  8. EDOXABAN TOSYLATE [Concomitant]
     Active Substance: EDOXABAN TOSYLATE
  9. SODIUM FERROUS CITRATE [Concomitant]
     Active Substance: SODIUM FERROUS CITRATE
     Dosage: UNK
  10. SODIUM FERROUS CITRATE [Concomitant]
     Active Substance: SODIUM FERROUS CITRATE
  11. SPIRONOLACTONE [Concomitant]
     Active Substance: SPIRONOLACTONE
     Dosage: UNK
  12. SPIRONOLACTONE [Concomitant]
     Active Substance: SPIRONOLACTONE
  13. BISOPROLOL [Concomitant]
     Active Substance: BISOPROLOL
     Dosage: UNK
  14. AZOSEMIDE [Concomitant]
     Active Substance: AZOSEMIDE
     Dosage: UNK
  15. AZOSEMIDE [Concomitant]
     Active Substance: AZOSEMIDE
  16. BREZTRI [Suspect]
     Active Substance: BUDESONIDE\FORMOTEROL\GLYCOPYRROLATE
     Indication: Product used for unknown indication
     Route: 065
  17. LOPERAMIDE HYDROCHLORIDE [Concomitant]
     Active Substance: LOPERAMIDE HYDROCHLORIDE
  18. DAPAGLIFLOZIN [Concomitant]
     Active Substance: DAPAGLIFLOZIN
  19. BISOPROLOL [Concomitant]
     Active Substance: BISOPROLOL

REACTIONS (20)
  - Erythema multiforme [Recovering/Resolving]
  - Oral disorder [Recovering/Resolving]
  - Renal disorder [Recovering/Resolving]
  - Hyperglycaemia [Recovering/Resolving]
  - Dehydration [Unknown]
  - Acute kidney injury [Unknown]
  - Hyponatraemia [Unknown]
  - Dizziness [Unknown]
  - Fall [Unknown]
  - Contusion [Unknown]
  - Pyrexia [Recovering/Resolving]
  - Lung infiltration [Unknown]
  - Anaemia [Recovering/Resolving]
  - Lip dry [Unknown]
  - Insomnia [Unknown]
  - Weight increased [Unknown]
  - Haemorrhage subcutaneous [Unknown]
  - Rash [Recovering/Resolving]
  - Stomatitis [Recovering/Resolving]
  - Eyelid disorder [Unknown]

NARRATIVE: CASE EVENT DATE: 20250519
